FAERS Safety Report 8336239-2 (Version None)
Quarter: 2012Q2

REPORT INFORMATION
  Report Type: 
  Country: None (occurrence: None)
  Receive Date: 20120501
  Receipt Date: 20120423
  Transmission Date: 20120825
  Serious: Yes (Other)
  Sender: FDA-Public Use
  Company Number: DSU-2012-03231

PATIENT
  Age: 84 Year
  Sex: Female

DRUGS (2)
  1. BENICAR [Suspect]
     Indication: PRODUCT USED FOR UNKNOWN INDICATION
     Dosage: UNKNOWN, PER ORAL
     Route: 048
     Dates: start: 20090101
  2. BENICAR HCT [Suspect]
     Indication: PRODUCT USED FOR UNKNOWN INDICATION
     Dosage: UNKNOWN, PER ORAL
     Route: 048
     Dates: start: 20090101

REACTIONS (1)
  - CHOLECYSTECTOMY [None]
